FAERS Safety Report 21356315 (Version 1)
Quarter: 2022Q3

REPORT INFORMATION
  Report Type: Report from Study
  Country: US (occurrence: US)
  Receive Date: 20220920
  Receipt Date: 20220920
  Transmission Date: 20221027
  Serious: Yes (Death)
  Sender: FDA-Public Use
  Company Number: US-ABBVIE-4127339

PATIENT
  Sex: Female

DRUGS (10)
  1. HUMIRA [Suspect]
     Active Substance: ADALIMUMAB
     Indication: Osteoarthritis
     Route: 058
  2. PROMETHAZINE HYDROCHLORIDE [Concomitant]
     Active Substance: PROMETHAZINE HYDROCHLORIDE
     Indication: Product used for unknown indication
  3. OXYCODONE HYDROCHLORIDE [Concomitant]
     Active Substance: OXYCODONE HYDROCHLORIDE
     Indication: Product used for unknown indication
  4. GABAPENTIN [Concomitant]
     Active Substance: GABAPENTIN
     Indication: Product used for unknown indication
  5. RESTORIL [Concomitant]
     Active Substance: TEMAZEPAM
     Indication: Product used for unknown indication
  6. EDARBI 40MG TAB [Concomitant]
     Indication: Product used for unknown indication
  7. KLONOPIN 1MG TABLET [Concomitant]
     Indication: Product used for unknown indication
  8. MULTIPLE VITAMIN D3 [Concomitant]
     Indication: Product used for unknown indication
  9. PERCOCET 10-325 MG TABLET [Concomitant]
     Indication: Product used for unknown indication
  10. ZOLOFT 100MG TABLET [Concomitant]
     Indication: Product used for unknown indication

REACTIONS (1)
  - Death [Fatal]
